FAERS Safety Report 5987173-4 (Version None)
Quarter: 2008Q4

REPORT INFORMATION
  Report Type: 
  Country: None (occurrence: None)
  Receive Date: 20081203
  Receipt Date: 20081119
  Transmission Date: 20090506
  Serious: Yes (Life-Threatening, Hospitalization)
  Sender: FDA-Public Use
  Company Number: 2008AL012037

PATIENT
  Age: 65 Year
  Sex: Female

DRUGS (10)
  1. DIAZEPAM TAB [Suspect]
     Dosage: 2.5 MG;QD;UNK
  2. ZIPRASIDONE HCL [Concomitant]
  3. BENZHEXOL HYDROCHLORIDE [Concomitant]
  4. FLUPENTIXOL DECANOATE [Concomitant]
  5. VARENICLINE TARTRATE [Concomitant]
  6. CALCIUM CARBONATE [Concomitant]
  7. COLOXYL WITH SENNA [Concomitant]
  8. FLUTICASONE PROPIONATE [Concomitant]
  9. TIOTROPIUM BROMIDE [Concomitant]
  10. ALBUTEROL [Concomitant]

REACTIONS (2)
  - HYPONATRAEMIA [None]
  - RESPIRATORY FAILURE [None]
